FAERS Safety Report 7732959-9 (Version None)
Quarter: 2011Q3

REPORT INFORMATION
  Report Type: 
  Country: None (occurrence: None)
  Receive Date: 20110907
  Receipt Date: 20110901
  Transmission Date: 20111222
  Serious: Yes (Hospitalization, Other)
  Sender: FDA-Public Use
  Company Number: US-PFIZER INC-2011205479

PATIENT
  Sex: Female
  Weight: 48.526 kg

DRUGS (2)
  1. CRESTOR [Concomitant]
     Indication: BLOOD CHOLESTEROL INCREASED
     Dosage: 10 MG, DAILY
     Route: 048
     Dates: start: 20010101
  2. DILANTIN [Suspect]
     Indication: CONVULSION
     Dosage: 100 MG, 2X/DAY
     Route: 048
     Dates: start: 20110601

REACTIONS (19)
  - GINGIVITIS [None]
  - SOMNOLENCE [None]
  - GLOSSITIS [None]
  - DYSPHAGIA [None]
  - STOMATITIS [None]
  - CHROMATURIA [None]
  - DYSARTHRIA [None]
  - FATIGUE [None]
  - DECREASED EYE CONTACT [None]
  - DISTURBANCE IN ATTENTION [None]
  - APTYALISM [None]
  - ABDOMINAL PAIN UPPER [None]
  - HYPOPNOEA [None]
  - DECREASED APPETITE [None]
  - NAUSEA [None]
  - MEMORY IMPAIRMENT [None]
  - URINARY TRACT INFECTION [None]
  - CHEILITIS [None]
  - VOMITING [None]
